FAERS Safety Report 7610446-6 (Version None)
Quarter: 2011Q3

REPORT INFORMATION
  Report Type: 
  Country: None (occurrence: None)
  Receive Date: 20110715
  Receipt Date: 20110711
  Transmission Date: 20111222
  Serious: Yes (Other)
  Sender: FDA-Public Use
  Company Number: CA-SP-2011-04548

PATIENT
  Sex: Male

DRUGS (2)
  1. TUBERSOL [Suspect]
     Indication: TUBERCULIN TEST
     Route: 023
  2. ENGERIX-B [Suspect]
     Indication: IMMUNISATION
     Route: 030

REACTIONS (9)
  - TREMOR [None]
  - LOSS OF CONSCIOUSNESS [None]
  - HEART RATE DECREASED [None]
  - PALLOR [None]
  - SYNCOPE [None]
  - CONVULSION [None]
  - PRESYNCOPE [None]
  - BLOOD PRESSURE DECREASED [None]
  - ASTHENIA [None]
